FAERS Safety Report 22058969 (Version 6)
Quarter: 2023Q1

REPORT INFORMATION
  Report Type: Spontaneous
  Country: US (occurrence: US)
  Receive Date: 20230303
  Receipt Date: 20230329
  Transmission Date: 20230418
  Serious: No
  Sender: FDA-Public Use
  Company Number: US-UNITED THERAPEUTICS-UNT-2023-006004

PATIENT
  Age: 62 Year
  Sex: Female

DRUGS (6)
  1. ORENITRAM [Suspect]
     Active Substance: TREPROSTINIL
     Indication: Pulmonary arterial hypertension
     Dosage: 0.25 MG, TID
     Route: 048
     Dates: start: 20230224
  2. ORENITRAM [Suspect]
     Active Substance: TREPROSTINIL
     Dosage: 0.25 MG, BID
     Route: 048
     Dates: start: 20230226, end: 202303
  3. ORENITRAM [Suspect]
     Active Substance: TREPROSTINIL
     Dosage: 0.5 MG, BID
     Route: 048
     Dates: start: 20230317, end: 20230320
  4. ORENITRAM [Suspect]
     Active Substance: TREPROSTINIL
     Dosage: 0.375 MG, BID
     Route: 048
     Dates: start: 20230320
  5. ORENITRAM [Suspect]
     Active Substance: TREPROSTINIL
     Indication: Pulmonary arterial hypertension
     Dosage: UNK
     Route: 048
  6. MECLIZINE [Suspect]
     Active Substance: MECLIZINE HYDROCHLORIDE
     Indication: Vertigo
     Route: 065

REACTIONS (19)
  - Fatigue [Recovering/Resolving]
  - Rhinorrhoea [Unknown]
  - Vertigo [Not Recovered/Not Resolved]
  - Viral infection [Not Recovered/Not Resolved]
  - Diarrhoea [Recovering/Resolving]
  - SARS-CoV-2 test positive [Not Recovered/Not Resolved]
  - Migraine [Recovering/Resolving]
  - Ear infection viral [Unknown]
  - Hypersomnia [Unknown]
  - Flushing [Unknown]
  - Chest discomfort [Recovered/Resolved]
  - Dyspnoea [Unknown]
  - Panic reaction [Unknown]
  - Sluggishness [Unknown]
  - Nausea [Unknown]
  - Chest pain [Unknown]
  - Palpitations [Unknown]
  - Peripheral swelling [Unknown]
  - Speech disorder [Unknown]

NARRATIVE: CASE EVENT DATE: 20230201
